FAERS Safety Report 6710554-8 (Version None)
Quarter: 2010Q2

REPORT INFORMATION
  Report Type: 
  Country: None (occurrence: None)
  Receive Date: 20100504
  Receipt Date: 20100423
  Transmission Date: 20101027
  Serious: Yes (Hospitalization, Other)
  Sender: FDA-Public Use
  Company Number: US-WYE-H14809010

PATIENT
  Sex: Male
  Weight: 56 kg

DRUGS (9)
  1. TYGACIL [Suspect]
     Indication: ABDOMINAL ABSCESS
     Route: 042
     Dates: start: 20100308, end: 20100401
  2. SPIRONOLACTONE [Concomitant]
     Indication: ASCITES
     Dosage: UNKNOWN
  3. METOCLOPRAMIDE HYDROCHLORIDE [Concomitant]
     Indication: IMPAIRED GASTRIC EMPTYING
     Dosage: UNKNOWN
  4. TRAZODONE HCL [Concomitant]
     Dosage: UNKNOWN
  5. LACTULOSE [Concomitant]
     Dosage: UNKNOWN
  6. FUROSEMIDE [Concomitant]
     Dosage: UNKNOWN
  7. INSULIN [Concomitant]
     Dosage: UNKNOWN
  8. PROPRANOLOL [Concomitant]
     Indication: PORTAL HYPERTENSION
     Dosage: UNKNOWN
  9. OMEPRAZOLE [Concomitant]
     Dosage: UNKNOWN

REACTIONS (4)
  - ALANINE AMINOTRANSFERASE INCREASED [None]
  - ASPARTATE AMINOTRANSFERASE INCREASED [None]
  - BLOOD ALKALINE PHOSPHATASE INCREASED [None]
  - CHOLELITHIASIS [None]
